FAERS Safety Report 5647660-5 (Version None)
Quarter: 2008Q1

REPORT INFORMATION
  Report Type: 
  Country: None (occurrence: None)
  Receive Date: 20080303
  Receipt Date: 20080220
  Transmission Date: 20080703
  Serious: Yes (Other)
  Sender: FDA-Public Use
  Company Number: JP-PFIZER INC-2007108179

PATIENT
  Age: 45 Year
  Sex: Female

DRUGS (9)
  1. VFEND [Suspect]
     Indication: TRICHOSPORON INFECTION
     Route: 042
     Dates: start: 20071024, end: 20071101
  2. VFEND [Suspect]
     Indication: TRICHOSPORON INFECTION
     Route: 048
     Dates: start: 20071102, end: 20071127
  3. VFEND [Suspect]
     Route: 048
     Dates: start: 20071128, end: 20071226
  4. RANIMUSTINE [Suspect]
     Route: 042
     Dates: start: 20071008, end: 20071009
  5. ENDOXAN [Suspect]
     Route: 042
     Dates: start: 20071013, end: 20071014
  6. CARBOPLATIN [Suspect]
     Route: 042
     Dates: start: 20071009, end: 20071012
  7. ETOPOSIDE [Suspect]
     Route: 042
     Dates: start: 20071010, end: 20071012
  8. BAKTAR [Concomitant]
     Indication: ANTIFUNGAL PROPHYLAXIS
     Route: 048
     Dates: start: 20070529, end: 20071012
  9. LASIX [Concomitant]
     Indication: CAPILLARY LEAK SYNDROME
     Route: 048

REACTIONS (2)
  - GENERALISED OEDEMA [None]
  - MYALGIA [None]
